FAERS Safety Report 4667170-1 (Version None)
Quarter: 2005Q2

REPORT INFORMATION
  Report Type: 
  Country: None (occurrence: None)
  Receive Date: 20050520
  Receipt Date: 20040701
  Transmission Date: 20051028
  Serious: Yes (Other)
  Sender: FDA-Public Use
  Company Number: PHEH2004US07159

PATIENT
  Age: 46 Year
  Sex: Female

DRUGS (21)
  1. DURAGESIC-100 [Concomitant]
  2. OXYCONTIN [Concomitant]
  3. CELEBREX [Concomitant]
  4. NEURONTIN [Concomitant]
  5. FASLODEX [Concomitant]
  6. AROMYCIN [Concomitant]
  7. VIOXX [Concomitant]
  8. ZOLOFT [Concomitant]
  9. FLUOROURACIL [Concomitant]
  10. ADRIAMYCIN PFS [Concomitant]
  11. NEUPOGEN [Concomitant]
  12. PROCRIT                            /00909301/ [Concomitant]
  13. TAMOXIFEN [Concomitant]
  14. ARIMIDEX [Concomitant]
  15. TAXOTERE [Concomitant]
  16. XELODA [Concomitant]
  17. KYTRIL [Concomitant]
  18. DECADRON                                /CAN/ [Concomitant]
  19. ZOFRAN [Concomitant]
  20. GEMZAR [Concomitant]
  21. ZOMETA [Suspect]
     Indication: BREAST CANCER METASTATIC
     Dosage: 4 MG EVERY MONTH
     Dates: start: 20030228, end: 20040601

REACTIONS (8)
  - ACTINOMYCOTIC SKIN INFECTION [None]
  - BONE DEBRIDEMENT [None]
  - BONE DISORDER [None]
  - DENTAL OPERATION [None]
  - MOUTH ULCERATION [None]
  - NECROSIS [None]
  - OSTEOMYELITIS [None]
  - OSTEONECROSIS [None]
